FAERS Safety Report 6453965-0 (Version None)
Quarter: 2009Q4

REPORT INFORMATION
  Report Type: 
  Country: None (occurrence: None)
  Receive Date: 20091124
  Receipt Date: 20091015
  Transmission Date: 20100525
  Serious: No
  Sender: FDA-Public Use
  Company Number: US-BAYER-200938294NA

PATIENT
  Age: 75 Year
  Sex: Male
  Weight: 61 kg

DRUGS (10)
  1. ULTRAVIST 370 [Suspect]
     Indication: COMPUTERISED TOMOGRAM ABDOMEN
     Dosage: TOTAL DAILY DOSE: 80 ML  UNIT DOSE: 500 ML
     Route: 042
     Dates: start: 20091015, end: 20091015
  2. ULTRAVIST 370 [Suspect]
     Route: 048
     Dates: start: 20091015, end: 20091015
  3. WELLBUTRIN [Concomitant]
  4. SEROQUEL [Concomitant]
  5. ALPRAZOLAM [Concomitant]
  6. MULTI-VITAMIN [Concomitant]
  7. SAW PALMETTO [Concomitant]
  8. VITAMIN D [Concomitant]
  9. VITAMIN B COMPLEX CAP [Concomitant]
  10. BENADRYL [Concomitant]
     Dosage: AS USED: 50 MG

REACTIONS (1)
  - URTICARIA [None]
